FAERS Safety Report 10707455 (Version 1)
Quarter: 2015Q1

REPORT INFORMATION
  Report Type: Spontaneous
  Country: US (occurrence: None)
  Receive Date: 20150112
  Receipt Date: 20150112
  Transmission Date: 20150721
  Serious: Yes (Hospitalization)
  Sender: FDA-Public Use
  Company Number: None

PATIENT
  Age: 74 Year
  Sex: Male
  Weight: 93 kg

DRUGS (1)
  1. INTRON A [Suspect]
     Active Substance: INTERFERON ALFA-2B
     Dates: end: 20140425

REACTIONS (6)
  - Aspartate aminotransferase increased [None]
  - Gastrooesophageal reflux disease [None]
  - Thrombocytopenia [None]
  - Influenza like illness [None]
  - Hypophosphataemia [None]
  - Fatigue [None]

NARRATIVE: CASE EVENT DATE: 20140428
